FAERS Safety Report 24588905 (Version 2)
Quarter: 2024Q4

REPORT INFORMATION
  Report Type: Spontaneous
  Country: FR (occurrence: FR)
  Receive Date: 20241107
  Receipt Date: 20241113
  Transmission Date: 20250115
  Serious: Yes (Other)
  Sender: PFIZER
  Company Number: None

PATIENT
  Age: 47 Year
  Sex: Female

DRUGS (4)
  1. INIPOMP [Suspect]
     Active Substance: PANTOPRAZOLE SODIUM
     Dosage: UNK
     Route: 042
     Dates: start: 20070423, end: 20070429
  2. INIPOMP [Suspect]
     Active Substance: PANTOPRAZOLE SODIUM
     Dosage: 20 MILLIGRAM
     Route: 048
     Dates: start: 20070430, end: 20070514
  3. KETOPROFEN [Suspect]
     Active Substance: KETOPROFEN
     Dosage: 200 MILLIGRAM
     Route: 042
     Dates: start: 20070428, end: 20070430
  4. PRISTINAMYCIN [Suspect]
     Active Substance: PRISTINAMYCIN
     Dosage: UNK
     Route: 048
     Dates: start: 20070508

REACTIONS (2)
  - Dermatitis exfoliative generalised [Recovered/Resolved]
  - Allergy test positive [Recovered/Resolved]

NARRATIVE: CASE EVENT DATE: 20070430
